FAERS Safety Report 11125897 (Version 20)
Quarter: 2016Q4

REPORT INFORMATION
  Report Type: Report from Study
  Country: US (occurrence: US)
  Receive Date: 20150520
  Receipt Date: 20161229
  Transmission Date: 20170206
  Serious: Yes (Other)
  Sender: FDA-Public Use
  Company Number: US-SA-2015SA035502

PATIENT
  Age: 40 Year
  Sex: Female

DRUGS (12)
  1. AUBAGIO [Suspect]
     Active Substance: TERIFLUNOMIDE
     Indication: MULTIPLE SCLEROSIS
     Route: 048
     Dates: start: 20140718
  2. AUBAGIO [Suspect]
     Active Substance: TERIFLUNOMIDE
     Indication: MULTIPLE SCLEROSIS
     Route: 048
     Dates: start: 20150313, end: 20160112
  3. COPAXONE [Concomitant]
     Active Substance: GLATIRAMER ACETATE
     Indication: MULTIPLE SCLEROSIS
     Dates: start: 20131001, end: 20150312
  4. AUBAGIO [Suspect]
     Active Substance: TERIFLUNOMIDE
     Indication: MULTIPLE SCLEROSIS
     Route: 048
     Dates: start: 201601, end: 201601
  5. AUBAGIO [Suspect]
     Active Substance: TERIFLUNOMIDE
     Indication: MULTIPLE SCLEROSIS
     Route: 048
     Dates: start: 20140718
  6. AUBAGIO [Suspect]
     Active Substance: TERIFLUNOMIDE
     Indication: MULTIPLE SCLEROSIS
     Route: 048
     Dates: start: 20160426
  7. ATIVAN [Concomitant]
     Active Substance: LORAZEPAM
     Indication: ANXIETY
  8. AUBAGIO [Suspect]
     Active Substance: TERIFLUNOMIDE
     Indication: MULTIPLE SCLEROSIS
     Route: 048
     Dates: start: 20160426
  9. AUBAGIO [Suspect]
     Active Substance: TERIFLUNOMIDE
     Indication: MULTIPLE SCLEROSIS
     Route: 048
     Dates: start: 20160127, end: 20160417
  10. ADDERALL [Concomitant]
     Active Substance: AMPHETAMINE ASPARTATE\AMPHETAMINE SULFATE\DEXTROAMPHETAMINE SACCHARATE\DEXTROAMPHETAMINE SULFATE
  11. ADDERALL [Concomitant]
     Active Substance: AMPHETAMINE ASPARTATE\AMPHETAMINE SULFATE\DEXTROAMPHETAMINE SACCHARATE\DEXTROAMPHETAMINE SULFATE
  12. AUBAGIO [Suspect]
     Active Substance: TERIFLUNOMIDE
     Indication: MULTIPLE SCLEROSIS
     Route: 048
     Dates: start: 20160127, end: 20160417

REACTIONS (68)
  - Pain [Recovered/Resolved]
  - Multiple sclerosis relapse [Unknown]
  - Muscle twitching [Not Recovered/Not Resolved]
  - Dacryostenosis acquired [Unknown]
  - Dry eye [Unknown]
  - Diarrhoea [Unknown]
  - Crying [Unknown]
  - Decreased appetite [Unknown]
  - Fatigue [Not Recovered/Not Resolved]
  - Hair growth abnormal [Unknown]
  - Feeling abnormal [Not Recovered/Not Resolved]
  - Hair texture abnormal [Recovering/Resolving]
  - Contusion [Unknown]
  - Pain in extremity [Unknown]
  - Feeling abnormal [Unknown]
  - Asthenia [Unknown]
  - Agitation [Unknown]
  - Abdominal discomfort [Not Recovered/Not Resolved]
  - Alopecia [Recovered/Resolved]
  - Asthenia [Recovered/Resolved]
  - Dizziness [Not Recovered/Not Resolved]
  - Condition aggravated [Unknown]
  - Memory impairment [Unknown]
  - Cognitive disorder [Unknown]
  - Malaise [Not Recovered/Not Resolved]
  - Frustration tolerance decreased [Not Recovered/Not Resolved]
  - Pain [Not Recovered/Not Resolved]
  - Multiple sclerosis relapse [Not Recovered/Not Resolved]
  - Bruxism [Not Recovered/Not Resolved]
  - Onychoclasis [Not Recovered/Not Resolved]
  - Dysphemia [Unknown]
  - Condition aggravated [Not Recovered/Not Resolved]
  - Malaise [Unknown]
  - Unevaluable event [Recovered/Resolved]
  - Tunnel vision [Unknown]
  - Hair texture abnormal [Unknown]
  - Feeling hot [Not Recovered/Not Resolved]
  - Vertigo [Not Recovered/Not Resolved]
  - Body temperature abnormal [Unknown]
  - Gastric disorder [Unknown]
  - Activities of daily living impaired [Not Recovered/Not Resolved]
  - Fatigue [Recovered/Resolved]
  - Depression [Unknown]
  - Feelings of worthlessness [Unknown]
  - Sciatica [Not Recovered/Not Resolved]
  - Feeling abnormal [Not Recovered/Not Resolved]
  - Nausea [Not Recovered/Not Resolved]
  - Weight decreased [Unknown]
  - Headache [Not Recovered/Not Resolved]
  - Hypersomnia [Recovered/Resolved]
  - Asthenopia [Unknown]
  - Dyspepsia [Unknown]
  - Insomnia [Unknown]
  - Fatigue [Not Recovered/Not Resolved]
  - Fall [Not Recovered/Not Resolved]
  - Amnesia [Not Recovered/Not Resolved]
  - Pyrexia [Not Recovered/Not Resolved]
  - Alopecia [Recovered/Resolved]
  - Dyspnoea [Unknown]
  - Anxiety [Not Recovered/Not Resolved]
  - Grip strength decreased [Unknown]
  - Pain of skin [Unknown]
  - Paraesthesia [Unknown]
  - Abdominal pain upper [Recovered/Resolved]
  - Stress [Not Recovered/Not Resolved]
  - Memory impairment [Unknown]
  - Abdominal distension [Unknown]
  - Insomnia [Not Recovered/Not Resolved]

NARRATIVE: CASE EVENT DATE: 2015
